FAERS Safety Report 10201039 (Version 1)
Quarter: 2014Q2

REPORT INFORMATION
  Report Type: Report from Study
  Country: MX (occurrence: MX)
  Receive Date: 20140528
  Receipt Date: 20140528
  Transmission Date: 20141212
  Serious: Yes (Other)
  Sender: FDA-Public Use
  Company Number: PHHY2014MX064727

PATIENT
  Age: 73 Year
  Sex: Male

DRUGS (3)
  1. FLOTAC [Suspect]
     Indication: SPINAL PAIN
     Dosage: 140 MG, DAILY
     Route: 048
     Dates: start: 201005
  2. GLIBENCLAMIDE [Concomitant]
     Indication: HYPERTENSION
     Dosage: 2 UKN, DAILY
     Dates: start: 200205
  3. FELODIPINE [Concomitant]
     Indication: CARDIOVASCULAR DISORDER
     Dosage: 1 UKN, DAILY
     Dates: start: 200205

REACTIONS (2)
  - Infarction [Not Recovered/Not Resolved]
  - Diabetes mellitus inadequate control [Not Recovered/Not Resolved]
